FAERS Safety Report 7571981-2 (Version None)
Quarter: 2011Q2

REPORT INFORMATION
  Report Type: 
  Country: None (occurrence: None)
  Receive Date: 20110620
  Receipt Date: 20110613
  Transmission Date: 20111010
  Serious: Yes (Death)
  Sender: FDA-Public Use
  Company Number: 2011NUEUSA00023

PATIENT
  Sex: Male

DRUGS (1)
  1. NUEDEXTA [Suspect]
     Indication: PRODUCT USED FOR UNKNOWN INDICATION

REACTIONS (1)
  - PROGRESSIVE SUPRANUCLEAR PALSY [None]
